FAERS Safety Report 23977710 (Version 1)
Quarter: 2024Q2

REPORT INFORMATION
  Report Type: Spontaneous
  Country: US (occurrence: US)
  Receive Date: 20240614
  Receipt Date: 20240614
  Transmission Date: 20240716
  Serious: No
  Sender: FDA-Public Use
  Company Number: US-SA-SAC20240607000224

PATIENT
  Age: 57 Year
  Sex: Female
  Weight: 74.8 kg

DRUGS (2)
  1. DUPIXENT [Suspect]
     Active Substance: DUPILUMAB
     Indication: Dermatitis atopic
     Dosage: 300 MG, QOW
     Route: 058
     Dates: start: 20240507
  2. CYCLOSPORINE [Concomitant]
     Active Substance: CYCLOSPORINE
     Dosage: 200MG BY MOUTH DAILY
     Route: 048

REACTIONS (2)
  - Ocular hyperaemia [Recovered/Resolved]
  - Arthralgia [Unknown]

NARRATIVE: CASE EVENT DATE: 20240601
